FAERS Safety Report 14689871 (Version 1)
Quarter: 2018Q1

REPORT INFORMATION
  Report Type: Spontaneous
  Country: US (occurrence: US)
  Receive Date: 20180328
  Receipt Date: 20180328
  Transmission Date: 20180509
  Serious: No
  Sender: FDA-Public Use
  Company Number: US-SMITH AND NEPHEW, INC-2017SMT00534

PATIENT

DRUGS (2)
  1. HYDROFERA BLUE (GENTIAN VIOLET\METHYLENE BLUE) [Suspect]
     Active Substance: DEVICE
     Indication: PYODERMA
     Route: 061
  2. COLLAGENASE SANTYL [Suspect]
     Active Substance: COLLAGENASE CLOSTRIDIUM HISTOLYTICUM
     Indication: PYODERMA
     Route: 061

REACTIONS (2)
  - Off label use [Unknown]
  - Application site pain [Unknown]
